FAERS Safety Report 9502189 (Version 1)
Quarter: 2013Q3

REPORT INFORMATION
  Report Type: Spontaneous
  Country: JP (occurrence: JP)
  Receive Date: 20130906
  Receipt Date: 20130906
  Transmission Date: 20140515
  Serious: Yes (Other)
  Sender: FDA-Public Use
  Company Number: PHHY2013JP096831

PATIENT
  Sex: Female

DRUGS (1)
  1. DIOVAN [Suspect]
     Indication: HYPERTENSION
     Dosage: 80 MG, UNK
     Route: 048

REACTIONS (12)
  - Conjunctivitis allergic [Unknown]
  - Eye swelling [Unknown]
  - Lacrimation increased [Unknown]
  - Eyelid disorder [Unknown]
  - Pharyngeal oedema [Unknown]
  - Dyspnoea [Unknown]
  - Swelling face [Unknown]
  - Pyrexia [Unknown]
  - Joint swelling [Unknown]
  - Hypersensitivity [Unknown]
  - Rash [Unknown]
  - Cough [Unknown]
